FAERS Safety Report 18568308 (Version 1)
Quarter: 2020Q4

REPORT INFORMATION
  Report Type: Spontaneous
  Country: US (occurrence: US)
  Receive Date: 20201202
  Receipt Date: 20201202
  Transmission Date: 20210114
  Serious: Yes (Hospitalization, Other)
  Sender: FDA-Public Use
  Company Number: US-HIKMA PHARMACEUTICALS USA INC.-US-H14001-20-05427

PATIENT
  Age: 20 Year
  Sex: Female

DRUGS (1)
  1. TESTOSTERONE. [Suspect]
     Active Substance: TESTOSTERONE
     Indication: TRANS-SEXUALISM
     Dosage: UNKNOWN
     Route: 065

REACTIONS (4)
  - Dissociative disorder [Unknown]
  - Condition aggravated [Unknown]
  - Homicidal ideation [Unknown]
  - Suicidal ideation [Unknown]
